FAERS Safety Report 7786843-5 (Version None)
Quarter: 2011Q3

REPORT INFORMATION
  Report Type: 
  Country: None (occurrence: None)
  Receive Date: 20110929
  Receipt Date: 20110929
  Transmission Date: 20111222
  Serious: Yes (Death, Life-Threatening, Hospitalization)
  Sender: FDA-Public Use
  Company Number: PHHO2011BR12604

PATIENT
  Sex: Female
  Weight: 26 kg

DRUGS (6)
  1. CALCIUM CARBONATE [Concomitant]
     Indication: OSTEOPENIA
     Dosage: 500 MG, BID
     Dates: start: 20080101, end: 20110720
  2. ALENDRONATE SODIUM [Concomitant]
     Indication: OSTEOPENIA
     Dosage: 35 MG, WEEKLY
     Dates: start: 20100923, end: 20110720
  3. METHOTREXATE [Suspect]
     Dosage: 15 MG, WEEKLY
     Dates: start: 20080101, end: 20110720
  4. METICORTEN [Concomitant]
     Indication: JUVENILE ARTHRITIS
     Dosage: 5 MG, UNK
     Route: 048
     Dates: start: 20101118, end: 20110719
  5. PLACEBO [Suspect]
     Indication: JUVENILE ARTHRITIS
     Dosage: UNK
     Route: 048
     Dates: start: 20100628, end: 20110627
  6. METICORTEN [Concomitant]
     Dosage: UNK
     Route: 048
     Dates: start: 20110720

REACTIONS (3)
  - HISTIOCYTOSIS HAEMATOPHAGIC [None]
  - UROSEPSIS [None]
  - NEPHROLITHIASIS [None]
